FAERS Safety Report 5742102-3 (Version None)
Quarter: 2008Q2

REPORT INFORMATION
  Report Type: 
  Country: None (occurrence: None)
  Receive Date: 20080514
  Receipt Date: 20080514
  Transmission Date: 20081010
  Serious: Yes (Life-Threatening)
  Sender: FDA-Public Use
  Company Number: None

PATIENT
  Sex: Male
  Weight: 82.8268 kg

DRUGS (1)
  1. LENALIDOMIDE    25 MG      07F0135 [Suspect]
     Indication: LYMPHOMA
     Dosage: DAYS 1-21      PO
     Route: 048
     Dates: start: 20080424, end: 20080430

REACTIONS (5)
  - HYPERCALCAEMIA [None]
  - HYPERKALAEMIA [None]
  - HYPERURICAEMIA [None]
  - RENAL FAILURE ACUTE [None]
  - THROMBOCYTOPENIA [None]
